FAERS Safety Report 17288675 (Version 1)
Quarter: 2020Q1

REPORT INFORMATION
  Report Type: Spontaneous
  Country: DE (occurrence: DE)
  Receive Date: 20200120
  Receipt Date: 20200120
  Transmission Date: 20200409
  Serious: Yes (Other)
  Sender: FDA-Public Use
  Company Number: DE-009507513-2001DEU005399

PATIENT
  Age: 78 Year
  Sex: Male

DRUGS (2)
  1. VELMETIA [Suspect]
     Active Substance: METFORMIN\SITAGLIPTIN
     Indication: TYPE 2 DIABETES MELLITUS
     Dosage: 2X/DAY (TWICE DAILY (1-0-1))
     Route: 048
     Dates: start: 201910
  2. ASIAN GINSENG [Concomitant]
     Active Substance: ASIAN GINSENG
     Dosage: UNK
     Dates: start: 201910

REACTIONS (4)
  - Squamous cell carcinoma of skin [Unknown]
  - Fatigue [Unknown]
  - Decreased appetite [Unknown]
  - Blood glucose fluctuation [Unknown]

NARRATIVE: CASE EVENT DATE: 2019
